FAERS Safety Report 6270695-9 (Version None)
Quarter: 2009Q3

REPORT INFORMATION
  Report Type: 
  Country: None (occurrence: None)
  Receive Date: 20090714
  Receipt Date: 20090702
  Transmission Date: 20100115
  Serious: Yes (Death, Life-Threatening, Other)
  Sender: FDA-Public Use
  Company Number: 2008-01175

PATIENT
  Age: 66 Year
  Sex: Male
  Weight: 63 kg

DRUGS (21)
  1. VELCADE [Suspect]
     Indication: MULTIPLE MYELOMA
     Dosage: 2.1 MG, INTRAVENOUS ; 1.2 MG, INTRAVENOUS ; 1.1 MG, INTRAVENOUS
     Route: 042
     Dates: start: 20070626, end: 20070706
  2. VELCADE [Suspect]
     Indication: MULTIPLE MYELOMA
     Dosage: 2.1 MG, INTRAVENOUS ; 1.2 MG, INTRAVENOUS ; 1.1 MG, INTRAVENOUS
     Route: 042
     Dates: start: 20070803, end: 20070803
  3. VELCADE [Suspect]
     Indication: MULTIPLE MYELOMA
     Dosage: 2.1 MG, INTRAVENOUS ; 1.2 MG, INTRAVENOUS ; 1.1 MG, INTRAVENOUS
     Route: 042
     Dates: start: 20071026, end: 20071129
  4. DEXAMETHASONE [Concomitant]
  5. ITRACONAZOLE [Concomitant]
  6. LEVOFLOXACIN [Concomitant]
  7. BAKTAR (SULAMETHOXAZOLE, TRIMETHOPRIM) [Concomitant]
  8. LANSOPRAZOLE [Concomitant]
  9. IMIDAPRIL HYDROCHLORIDE (IMIDAPRIL HYDROCHLORIDE) [Concomitant]
  10. LASIX [Concomitant]
  11. RHYTHMY (RILMAZAFONE) [Concomitant]
  12. POSTERISAN F (HYDROCORTISONE, ESCHERICHIA COLI) [Concomitant]
  13. ACIROVEC (ACICLOVIR) [Concomitant]
  14. MAGNESIUM OXIDE (MAGNESIUM OXIDE) [Concomitant]
  15. METHYCOBAL (MECOBALAMIN) [Concomitant]
  16. HARNAL (TAMSULOSIN HYDROCHLORIDE) [Concomitant]
  17. PURSENNID (SENNA LEAF) [Concomitant]
  18. ZANTAC 150 [Concomitant]
  19. VITAMEDIN (PYRIDOXINE HYDROCHLORIDE, THIAMINE DISULFIDE, CYANOCOBALAMI [Concomitant]
  20. PENTAZOCINE LACTATE [Concomitant]
  21. AMITRIPTYLINE HCL [Concomitant]

REACTIONS (13)
  - ANAEMIA [None]
  - CELLULITIS [None]
  - CONSTIPATION [None]
  - DISEASE PROGRESSION [None]
  - HAEMORRHOIDAL HAEMORRHAGE [None]
  - HERPES ZOSTER [None]
  - HYPOGAMMAGLOBULINAEMIA [None]
  - INFECTION SUSCEPTIBILITY INCREASED [None]
  - MULTIPLE MYELOMA [None]
  - NAUSEA [None]
  - PLATELET COUNT DECREASED [None]
  - PLEURAL EFFUSION [None]
  - SEPSIS [None]
